FAERS Safety Report 4270155-0 (Version None)
Quarter: 2004Q1

REPORT INFORMATION
  Report Type: 
  Country: None (occurrence: None)
  Receive Date: 20040113
  Receipt Date: 20040113
  Transmission Date: 20041129
  Serious: Yes (Hospitalization)
  Sender: FDA-Public Use
  Company Number: None

PATIENT
  Age: 58 Year
  Sex: Male

DRUGS (1)
  1. CISPLATIN [Suspect]
     Indication: CARCINOMA
     Dosage: 400 MG  QD X 4 DAYS

REACTIONS (1)
  - NEUTROPENIA [None]
